FAERS Safety Report 21728061 (Version 2)
Quarter: 2022Q4

REPORT INFORMATION
  Report Type: Spontaneous
  Country: CZ (occurrence: CZ)
  Receive Date: 20221214
  Receipt Date: 20221215
  Transmission Date: 20230112
  Serious: Yes (Other)
  Sender: FDA-Public Use
  Company Number: CZ-KOREA IPSEN Pharma-2022-33584

PATIENT
  Sex: Male

DRUGS (4)
  1. LANREOTIDE ACETATE [Suspect]
     Active Substance: LANREOTIDE ACETATE
     Indication: Prophylaxis
     Dosage: 120 MG
     Route: 065
     Dates: start: 2011
  2. LANREOTIDE ACETATE [Suspect]
     Active Substance: LANREOTIDE ACETATE
     Indication: Neuroendocrine tumour
  3. SANDOSTATIN [Suspect]
     Active Substance: OCTREOTIDE ACETATE
     Indication: Prophylaxis
     Dosage: 100 UG TWO DAYS BEFORE OPERATION TDS AND AS PART OF ANESTHESIA CONTINUOUS INFUSION OF 25 UG/HOUR
     Route: 058
     Dates: start: 2011
  4. SANDOSTATIN [Suspect]
     Active Substance: OCTREOTIDE ACETATE
     Indication: Neuroendocrine tumour
     Route: 058

REACTIONS (1)
  - Carcinoid syndrome [Recovered/Resolved]

NARRATIVE: CASE EVENT DATE: 20111201
